FAERS Safety Report 5747493-5 (Version None)
Quarter: 2008Q2

REPORT INFORMATION
  Report Type: 
  Country: None (occurrence: None)
  Receive Date: 20080523
  Receipt Date: 20080513
  Transmission Date: 20081010
  Serious: Yes (Death)
  Sender: FDA-Public Use
  Company Number: US-ROCHE-556144

PATIENT
  Sex: Female

DRUGS (1)
  1. BONIVA [Suspect]
     Dosage: OTHER INDICATIONS: BROKEN HIP/DECREASED HEIGHT/STOOPED SHOULDERS
     Route: 065

REACTIONS (1)
  - PANCREATIC CARCINOMA [None]
